FAERS Safety Report 4317243-8 (Version None)
Quarter: 2004Q1

REPORT INFORMATION
  Report Type: 
  Country: None (occurrence: None)
  Receive Date: 20040312
  Receipt Date: 20040302
  Transmission Date: 20041129
  Serious: Yes (Hospitalization)
  Sender: FDA-Public Use
  Company Number: 04P-144-0252252-00

PATIENT
  Age: 29 Year
  Sex: Male
  Weight: 49 kg

DRUGS (4)
  1. KALETRA [Suspect]
     Indication: HIV INFECTION
     Dosage: 3 CAPSULE, 2 IN 1 D, PER ORAL
     Route: 048
     Dates: start: 20040123
  2. STAVUDINE [Concomitant]
  3. LAMIVUDINE [Concomitant]
  4. SEPTRIM [Concomitant]

REACTIONS (1)
  - PNEUMONIA [None]
